FAERS Safety Report 18548599 (Version 1)
Quarter: 2020Q4

REPORT INFORMATION
  Report Type: Spontaneous
  Country: CO (occurrence: CO)
  Receive Date: 20201126
  Receipt Date: 20201126
  Transmission Date: 20210114
  Serious: Yes (Other)
  Sender: FDA-Public Use
  Company Number: CO-MSNLABS-2020MSNSPO00416

PATIENT

DRUGS (1)
  1. FOSAPREPITANT FOR INJECTION 150MG/VIAL [Suspect]
     Active Substance: FOSAPREPITANT
     Indication: PRODUCT USED FOR UNKNOWN INDICATION
     Route: 042

REACTIONS (2)
  - Seizure [Recovered/Resolved]
  - Product preparation issue [Unknown]
